FAERS Safety Report 8973389 (Version 1)
Quarter: 2012Q4

REPORT INFORMATION
  Report Type: 
  Country: US (occurrence: US)
  Receive Date: 20121218
  Receipt Date: 20121218
  Transmission Date: 20130627
  Serious: Yes (Hospitalization)
  Sender: FDA-Public Use
  Company Number: US-B.I. PHARMACEUTICALS,INC./RIDGEFIELD-2012-BI-03309GD

PATIENT
  Age: 57 Year
  Sex: Female

DRUGS (4)
  1. DABIGATRAN [Suspect]
     Indication: CEREBROVASCULAR ACCIDENT PROPHYLAXIS
     Dosage: 300 mg
  2. DABIGATRAN [Suspect]
     Dosage: 11.25 g
     Route: 048
  3. ALPRAZOLAM [Suspect]
  4. METOPROLOL XL [Concomitant]
     Indication: ATRIAL FIBRILLATION
     Dosage: 100 mg

REACTIONS (5)
  - Suicide attempt [Unknown]
  - Overdose [Unknown]
  - Intentional overdose [Unknown]
  - Somnolence [Unknown]
  - Mental status changes [Unknown]
